FAERS Safety Report 18623673 (Version 2)
Quarter: 2020Q4

REPORT INFORMATION
  Report Type: Spontaneous
  Country: US (occurrence: US)
  Receive Date: 20201216
  Receipt Date: 20201217
  Transmission Date: 20210114
  Serious: Yes (Death, Other)
  Sender: FDA-Public Use
  Company Number: US-PFIZER INC-2020179660

PATIENT
  Age: 66 Year
  Sex: Male
  Weight: 81.65 kg

DRUGS (3)
  1. RAPAMUNE [Suspect]
     Active Substance: SIROLIMUS
     Indication: LEIOMYOSARCOMA
     Dosage: 6 MG, DAILY (3 TABLETS EVERYDAY/TAKE 3 TABLETS BY MOUTH DAILY, QTY 90)
     Route: 048
     Dates: start: 202005, end: 2020
  2. RAPAMUNE [Suspect]
     Active Substance: SIROLIMUS
     Indication: SOFT TISSUE SARCOMA
     Dosage: 6 MG, 1X/DAY (1 MG TABLETS, 6 TABLETS ONCE DAILY)
     Route: 048
  3. RAPAMUNE [Suspect]
     Active Substance: SIROLIMUS
     Dosage: 6 MG, DAILY, [THREE TABLETS DAILY BY MOUTH]
     Route: 048
     Dates: start: 20200512, end: 20201127

REACTIONS (3)
  - Death [Fatal]
  - Drug effective for unapproved indication [Unknown]
  - Off label use [Unknown]

NARRATIVE: CASE EVENT DATE: 2020
